FAERS Safety Report 6572428-5 (Version None)
Quarter: 2010Q1

REPORT INFORMATION
  Report Type: 
  Country: None (occurrence: None)
  Receive Date: 20100205
  Receipt Date: 20100128
  Transmission Date: 20100710
  Serious: Yes (Hospitalization)
  Sender: FDA-Public Use
  Company Number: DE-TEVA-222814ISR

PATIENT
  Sex: Female

DRUGS (3)
  1. COPAXONE [Suspect]
     Indication: MULTIPLE SCLEROSIS
     Route: 058
     Dates: start: 20090901, end: 20100119
  2. ISOPROMETHAZINE HYDROCHLORIDE [Interacting]
  3. MELPERONE [Interacting]

REACTIONS (7)
  - BRONCHOSPASM [None]
  - DRUG INTERACTION [None]
  - DYSPNOEA [None]
  - ERYTHEMA [None]
  - HEADACHE [None]
  - IMMEDIATE POST-INJECTION REACTION [None]
  - TREMOR [None]
